FAERS Safety Report 19876492 (Version 1)
Quarter: 2021Q3

REPORT INFORMATION
  Report Type: Spontaneous
  Country: US (occurrence: US)
  Receive Date: 20210923
  Receipt Date: 20210923
  Transmission Date: 20211014
  Serious: Yes (Other)
  Sender: FDA-Public Use
  Company Number: US-PERRIGO-21US027750

PATIENT
  Age: 64 Year
  Sex: Male

DRUGS (1)
  1. RANITIDINE HYDROCHLORIDE (852) [Suspect]
     Active Substance: RANITIDINE HYDROCHLORIDE
     Indication: GASTROOESOPHAGEAL REFLUX DISEASE
     Dosage: DOSE FREQUENCY: PERIODS OF NON?USE (AT LEAST 3 MONTHS WITHOUT USE) ? ONLY OCCASIONALLY WHEN MY AUNT
     Route: 048
     Dates: start: 200502, end: 202003

REACTIONS (2)
  - Laryngeal squamous cell carcinoma [Unknown]
  - Laryngeal cancer [Unknown]

NARRATIVE: CASE EVENT DATE: 20170616
